FAERS Safety Report 8592886 (Version 3)
Quarter: 2014Q2

REPORT INFORMATION
  Report Type: Spontaneous
  Country: US (occurrence: US)
  Receive Date: 20120604
  Receipt Date: 20140401
  Transmission Date: 20141212
  Serious: No
  Sender: FDA-Public Use
  Company Number: US-ASTRAZENECA-2012SE34781

PATIENT
  Sex: Female
  Weight: 111.1 kg

DRUGS (37)
  1. NEXIUM [Suspect]
     Indication: GASTROOESOPHAGEAL REFLUX DISEASE
     Route: 048
     Dates: start: 20080805
  2. NEXIUM [Suspect]
     Indication: GASTROOESOPHAGEAL REFLUX DISEASE
     Route: 048
     Dates: start: 20120209
  3. ADVAIR [Concomitant]
     Dosage: 250-50
     Dates: start: 20120105
  4. ALPRAZOLAM [Concomitant]
     Dates: start: 20120615
  5. AMLODIPINE BESYLATE [Concomitant]
     Dates: start: 20120117
  6. CYCLOBENZAPRINE [Concomitant]
     Dates: start: 20120305
  7. CYMBALTA [Concomitant]
     Dates: start: 20120116
  8. DIPHENHYDRAMINE [Concomitant]
     Dates: start: 20120907
  9. DOCUSATE SODIUM/COLACE [Concomitant]
     Dates: start: 20120910
  10. GABAPENTIN [Concomitant]
     Dates: start: 20121127
  11. DOXYCYCLINE HYCLATE [Concomitant]
     Dates: start: 20120213
  12. HYDROCODON-ACETAMINOPH [Concomitant]
     Dosage: 7.5-325
     Dates: start: 20120106
  13. HYDROXYCHLOROQUINE [Concomitant]
     Dates: start: 20120524
  14. LUNESTA [Concomitant]
     Dates: start: 20120830
  15. MELOXICAM [Concomitant]
     Dates: start: 20120716
  16. METHADONE HCL [Concomitant]
     Dates: start: 20120919
  17. METOPROLOL TARTRATE [Concomitant]
     Route: 048
     Dates: start: 20120216
  18. MONTELUKAST SODIUM [Concomitant]
     Dates: start: 20120910
  19. MORPHINE SULFATE [Concomitant]
     Dates: start: 20120906
  20. OXYCODONE HCL [Concomitant]
     Dates: start: 20120615
  21. OXYCODONE HCL [Concomitant]
     Dates: start: 20120716
  22. OXYCODONE-ACETAMINOPHEN [Concomitant]
     Dosage: 5-325
     Dates: start: 20120412
  23. PANTOPRAZOLE SODIUM [Concomitant]
     Dates: start: 20120109
  24. PREDNISONE [Concomitant]
     Dates: start: 20120213
  25. PREDNISONE [Concomitant]
     Dates: start: 20120910
  26. SINGULAIR/SINGULAIR [Concomitant]
     Dates: start: 20120116
  27. TRAMADOL HCL [Concomitant]
     Dates: start: 20120503
  28. TEMAZEPAM [Concomitant]
     Dates: start: 20120515
  29. VENLAFAXINE HCL/EFFEXOR [Concomitant]
     Dates: start: 20120131
  30. ZOLPIDEM TARTRATE [Concomitant]
     Dates: start: 20120124
  31. PRILOSEC [Concomitant]
     Dates: start: 20091002
  32. MAXZIDE [Concomitant]
     Dates: start: 20091002
  33. LASIX [Concomitant]
     Dates: start: 20090319
  34. COLACE [Concomitant]
     Dates: start: 20091002
  35. LORATADINE [Concomitant]
     Dates: start: 20091020
  36. SPIRONOLACTONE [Concomitant]
     Dates: start: 20080808
  37. LISINOPRIL [Concomitant]
     Dates: start: 20080808

REACTIONS (7)
  - Osteoporosis [Unknown]
  - Multiple fractures [Unknown]
  - Calcium deficiency [Unknown]
  - Spinal disorder [Unknown]
  - Arthropathy [Unknown]
  - Rheumatoid arthritis [Unknown]
  - Vitamin D deficiency [Unknown]
